FAERS Safety Report 4865909-3 (Version None)
Quarter: 2005Q4

REPORT INFORMATION
  Report Type: 
  Country: None (occurrence: None)
  Receive Date: 20051223
  Receipt Date: 20051220
  Transmission Date: 20060501
  Serious: Yes (Hospitalization)
  Sender: FDA-Public Use
  Company Number: PHBS2005TR18746

PATIENT

DRUGS (3)
  1. TRILEPTAL [Suspect]
     Indication: EPILEPSY
     Route: 048
     Dates: end: 20051218
  2. TRILEPTAL [Suspect]
     Dosage: 6000 MG, ONCE/SINGLE
     Route: 048
     Dates: start: 20051219, end: 20051219
  3. DEPAKENE [Concomitant]

REACTIONS (3)
  - INTENTIONAL OVERDOSE [None]
  - LACRIMATION INCREASED [None]
  - SUICIDE ATTEMPT [None]
